FAERS Safety Report 9943390 (Version 1)
Quarter: 2014Q1

REPORT INFORMATION
  Report Type: Spontaneous
  Country: GB (occurrence: GB)
  Receive Date: 20140303
  Receipt Date: 20140303
  Transmission Date: 20141002
  Serious: Yes (Other)
  Sender: FDA-Public Use
  Company Number: PHFR2014GB001760

PATIENT
  Sex: 0

DRUGS (5)
  1. EVEROLIMUS [Suspect]
     Indication: BREAST CANCER
     Dosage: 10 MG, DAILY
     Route: 048
  2. EVEROLIMUS [Suspect]
     Dosage: 10 MG, DAILY
     Route: 048
  3. EVEROLIMUS [Suspect]
     Dosage: 5 MG, DAILY
     Route: 048
  4. EXEMESTANE [Suspect]
     Indication: BREAST CANCER
  5. DENOSUMAB [Concomitant]

REACTIONS (16)
  - Bone disorder [Unknown]
  - Arthralgia [Unknown]
  - Influenza like illness [Unknown]
  - Body temperature increased [Unknown]
  - Chills [Unknown]
  - Pain [Unknown]
  - Fatigue [Unknown]
  - Respiratory tract irritation [Unknown]
  - Pneumothorax [Unknown]
  - Pleural effusion [Unknown]
  - Chest discomfort [Unknown]
  - Onychoclasis [Unknown]
  - Wheezing [Unknown]
  - Glossodynia [Unknown]
  - Rash [Unknown]
  - Pneumonitis [Unknown]
